FAERS Safety Report 19665297 (Version 6)
Quarter: 2021Q4

REPORT INFORMATION
  Report Type: Spontaneous
  Country: GB (occurrence: GB)
  Receive Date: 20210805
  Receipt Date: 20211030
  Transmission Date: 20220303
  Serious: Yes (Hospitalization, Other)
  Sender: FDA-Public Use
  Company Number: NVSC2021GB171213

PATIENT
  Age: 59 Year
  Sex: Male

DRUGS (198)
  1. ARIPIPRAZOLE [Suspect]
     Active Substance: ARIPIPRAZOLE
     Indication: Schizophrenia
     Dosage: 5 MG
     Route: 065
  2. ARIPIPRAZOLE [Suspect]
     Active Substance: ARIPIPRAZOLE
     Dosage: 5 MG
     Route: 065
  3. ARIPIPRAZOLE [Suspect]
     Active Substance: ARIPIPRAZOLE
     Dosage: UNK
     Route: 065
  4. ARIPIPRAZOLE [Suspect]
     Active Substance: ARIPIPRAZOLE
     Dosage: 5 MG
     Route: 065
  5. RISPERIDONE [Suspect]
     Active Substance: RISPERIDONE
     Indication: Schizophrenia
     Dosage: 1 MG, QD
     Route: 065
  6. RISPERIDONE [Suspect]
     Active Substance: RISPERIDONE
     Dosage: 2 MG, BID
     Route: 065
  7. RISPERIDONE [Suspect]
     Active Substance: RISPERIDONE
     Dosage: 4 MG, QD
     Route: 065
  8. RISPERIDONE [Suspect]
     Active Substance: RISPERIDONE
     Dosage: 3 MG, BID
     Route: 048
  9. RISPERIDONE [Suspect]
     Active Substance: RISPERIDONE
     Dosage: 1 G, QD
     Route: 065
  10. RISPERIDONE [Suspect]
     Active Substance: RISPERIDONE
     Dosage: 6 MG, BID
     Route: 065
  11. RISPERIDONE [Suspect]
     Active Substance: RISPERIDONE
     Dosage: 4 MG (2 MG BID)
     Route: 065
  12. OLANZAPINE [Suspect]
     Active Substance: OLANZAPINE
     Indication: Schizophrenia
     Dosage: 2.5 MG
     Route: 065
     Dates: start: 20080823
  13. OLANZAPINE [Suspect]
     Active Substance: OLANZAPINE
     Dosage: 10 MG
     Route: 065
  14. OLANZAPINE [Suspect]
     Active Substance: OLANZAPINE
     Dosage: 10 MG
     Route: 065
  15. OLANZAPINE [Suspect]
     Active Substance: OLANZAPINE
     Dosage: 15 MG
     Route: 065
     Dates: start: 20060704
  16. OLANZAPINE [Suspect]
     Active Substance: OLANZAPINE
     Dosage: UNK
     Route: 065
  17. OLANZAPINE [Suspect]
     Active Substance: OLANZAPINE
     Dosage: UNK
     Route: 065
  18. OLANZAPINE [Suspect]
     Active Substance: OLANZAPINE
     Dosage: 10 MG
     Route: 065
  19. OLANZAPINE [Suspect]
     Active Substance: OLANZAPINE
     Dosage: 10 MG
     Route: 065
  20. OLANZAPINE [Suspect]
     Active Substance: OLANZAPINE
     Dosage: UNK
     Route: 065
  21. OLANZAPINE [Suspect]
     Active Substance: OLANZAPINE
     Dosage: UNK
     Route: 065
  22. OLANZAPINE [Suspect]
     Active Substance: OLANZAPINE
     Dosage: 10 MG
     Route: 065
  23. OLANZAPINE [Suspect]
     Active Substance: OLANZAPINE
     Dosage: 10 MG
     Route: 065
  24. OLANZAPINE [Suspect]
     Active Substance: OLANZAPINE
     Dosage: 15 MG
     Route: 065
     Dates: start: 20040217
  25. LITHIUM [Suspect]
     Active Substance: LITHIUM
     Indication: Product used for unknown indication
     Dosage: UNK
     Route: 065
  26. LITHIUM [Suspect]
     Active Substance: LITHIUM
     Dosage: 1 G
     Route: 065
  27. LITHIUM [Suspect]
     Active Substance: LITHIUM
     Dosage: 1 G
     Route: 065
  28. LITHIUM [Suspect]
     Active Substance: LITHIUM
     Dosage: 1 MG
     Route: 048
  29. LITHIUM [Suspect]
     Active Substance: LITHIUM
     Dosage: 2 G
     Route: 065
  30. LITHIUM [Suspect]
     Active Substance: LITHIUM
     Dosage: 1 G
     Route: 065
  31. LITHIUM [Suspect]
     Active Substance: LITHIUM
     Dosage: 2 G
     Route: 065
  32. LITHIUM [Suspect]
     Active Substance: LITHIUM
     Dosage: 1 G
     Route: 065
  33. LITHIUM [Suspect]
     Active Substance: LITHIUM
     Dosage: 1 G
     Route: 065
  34. LITHIUM [Suspect]
     Active Substance: LITHIUM
     Dosage: 2 G
     Route: 065
  35. LITHIUM [Suspect]
     Active Substance: LITHIUM
     Dosage: 1 G
     Route: 065
  36. LITHIUM [Suspect]
     Active Substance: LITHIUM
     Dosage: 2 G
     Route: 065
  37. LITHIUM [Suspect]
     Active Substance: LITHIUM
     Dosage: 1 G
     Route: 065
  38. LITHIUM [Suspect]
     Active Substance: LITHIUM
     Dosage: 1 MG
     Route: 048
  39. LITHIUM [Suspect]
     Active Substance: LITHIUM
     Dosage: 2 G
     Route: 065
  40. LITHIUM [Suspect]
     Active Substance: LITHIUM
     Dosage: 1 G
     Route: 065
  41. LITHIUM [Suspect]
     Active Substance: LITHIUM
     Dosage: 1 G
     Route: 065
  42. LITHIUM [Suspect]
     Active Substance: LITHIUM
     Dosage: UNK
     Route: 065
  43. LITHIUM [Suspect]
     Active Substance: LITHIUM
     Dosage: 1 G
     Route: 065
  44. LITHIUM [Suspect]
     Active Substance: LITHIUM
     Dosage: 2 G
     Route: 065
  45. LITHIUM [Suspect]
     Active Substance: LITHIUM
     Dosage: 1 G
     Route: 065
  46. LITHIUM [Suspect]
     Active Substance: LITHIUM
     Dosage: 1 G
     Route: 065
  47. HALOPERIDOL [Suspect]
     Active Substance: HALOPERIDOL
     Indication: Schizophrenia
     Dosage: 20 MG, QD
     Route: 065
  48. HALOPERIDOL [Suspect]
     Active Substance: HALOPERIDOL
     Dosage: 20 MG, QD
     Route: 048
  49. HALOPERIDOL [Suspect]
     Active Substance: HALOPERIDOL
     Dosage: 40 MG, QD
     Route: 048
  50. HALOPERIDOL [Suspect]
     Active Substance: HALOPERIDOL
     Dosage: 5 MG, BID
     Route: 048
  51. HALOPERIDOL [Suspect]
     Active Substance: HALOPERIDOL
     Dosage: 10 MG, BID
     Route: 065
  52. HALOPERIDOL [Suspect]
     Active Substance: HALOPERIDOL
     Dosage: 5 MG, BID
     Route: 048
  53. HALOPERIDOL [Suspect]
     Active Substance: HALOPERIDOL
     Dosage: 10 MG, QD
     Route: 048
  54. HALOPERIDOL [Suspect]
     Active Substance: HALOPERIDOL
     Dosage: 10 MG, BID
     Route: 048
  55. HALOPERIDOL [Suspect]
     Active Substance: HALOPERIDOL
     Dosage: 20 MG, BID
     Route: 048
  56. HALOPERIDOL [Suspect]
     Active Substance: HALOPERIDOL
     Dosage: 5 MG, BID
     Route: 048
  57. HALOPERIDOL [Suspect]
     Active Substance: HALOPERIDOL
     Dosage: 10 MG, QD
     Route: 065
  58. HALOPERIDOL [Suspect]
     Active Substance: HALOPERIDOL
     Dosage: 10 MG, QD
     Route: 048
  59. HALOPERIDOL [Suspect]
     Active Substance: HALOPERIDOL
     Dosage: 20 MG, QD
     Route: 048
  60. HALOPERIDOL [Suspect]
     Active Substance: HALOPERIDOL
     Dosage: 10 MG, QD
     Route: 048
  61. RISPERDAL [Suspect]
     Active Substance: RISPERIDONE
     Indication: Schizophrenia
     Dosage: 1 G, QD
     Route: 065
  62. RISPERDAL [Suspect]
     Active Substance: RISPERIDONE
     Dosage: 1 G, QD
     Route: 065
  63. RISPERDAL [Suspect]
     Active Substance: RISPERIDONE
     Dosage: 1 G, QD
     Route: 065
  64. RISPERDAL [Suspect]
     Active Substance: RISPERIDONE
     Dosage: 4 MG, QD
     Route: 065
  65. RISPERDAL [Suspect]
     Active Substance: RISPERIDONE
     Dosage: 6 MG, QD
     Route: 048
  66. RISPERDAL [Suspect]
     Active Substance: RISPERIDONE
     Dosage: 6 MG, QD
     Route: 065
  67. RISPERDAL [Suspect]
     Active Substance: RISPERIDONE
     Dosage: 4 MG, QD
     Route: 065
  68. RISPERDAL [Suspect]
     Active Substance: RISPERIDONE
     Dosage: 6 MG, QD
     Route: 065
  69. RISPERDAL [Suspect]
     Active Substance: RISPERIDONE
     Dosage: 4 MG, QD
     Route: 065
  70. RISPERDAL [Suspect]
     Active Substance: RISPERIDONE
     Dosage: 1 MG, QD
     Route: 065
  71. RISPERDAL [Suspect]
     Active Substance: RISPERIDONE
     Dosage: 4 MG, QD
     Route: 065
  72. RISPERDAL [Suspect]
     Active Substance: RISPERIDONE
     Dosage: 6 MG, QD
     Route: 065
  73. RISPERDAL [Suspect]
     Active Substance: RISPERIDONE
     Dosage: 6 MG, QD
     Route: 065
  74. RISPERDAL [Suspect]
     Active Substance: RISPERIDONE
     Dosage: 6 MG, QD
     Route: 048
  75. RISPERDAL [Suspect]
     Active Substance: RISPERIDONE
     Dosage: 6 MG, QD
     Route: 065
  76. RISPERDAL [Suspect]
     Active Substance: RISPERIDONE
     Dosage: 4 MG, QD
     Route: 065
  77. RISPERDAL [Suspect]
     Active Substance: RISPERIDONE
     Dosage: 1 G, QD
     Route: 065
  78. RISPERDAL [Suspect]
     Active Substance: RISPERIDONE
     Dosage: 4 MG, QD
     Route: 065
  79. RISPERDAL [Suspect]
     Active Substance: RISPERIDONE
     Dosage: 1 MG, QD
     Route: 065
  80. RISPERDAL [Suspect]
     Active Substance: RISPERIDONE
     Dosage: 1 MG, QD
     Route: 065
  81. RISPERDAL [Suspect]
     Active Substance: RISPERIDONE
     Dosage: 1 MG, QD
     Route: 065
  82. RISPERDAL [Suspect]
     Active Substance: RISPERIDONE
     Dosage: 1 G, QD
     Route: 065
  83. RISPERDAL [Suspect]
     Active Substance: RISPERIDONE
     Dosage: 6 MG, QD
     Route: 065
  84. RISPERDAL [Suspect]
     Active Substance: RISPERIDONE
     Dosage: 1 MG, QD
     Route: 065
  85. RISPERDAL [Suspect]
     Active Substance: RISPERIDONE
     Dosage: 4 MG, QD
     Route: 065
  86. RISPERDAL [Suspect]
     Active Substance: RISPERIDONE
     Dosage: 6 MG, QD
     Route: 065
  87. RISPERDAL [Suspect]
     Active Substance: RISPERIDONE
     Dosage: 3 MG, BID
     Route: 048
  88. RISPERDAL [Suspect]
     Active Substance: RISPERIDONE
     Dosage: 1 MG, QD
     Route: 065
  89. RISPERDAL [Suspect]
     Active Substance: RISPERIDONE
     Dosage: 4 MG, QD
     Route: 065
  90. RISPERDAL [Suspect]
     Active Substance: RISPERIDONE
     Dosage: 4 MG, QD
     Route: 065
  91. RISPERDAL [Suspect]
     Active Substance: RISPERIDONE
     Dosage: 1 G, QD
     Route: 065
  92. RISPERDAL [Suspect]
     Active Substance: RISPERIDONE
     Dosage: 6 MG, QD
     Route: 065
  93. RISPERDAL [Suspect]
     Active Substance: RISPERIDONE
     Dosage: 6 MG, QD
     Route: 065
  94. RISPERDAL [Suspect]
     Active Substance: RISPERIDONE
     Dosage: 4 MG, QD
     Route: 065
  95. RISPERDAL [Suspect]
     Active Substance: RISPERIDONE
     Dosage: 6 MG, QD
     Route: 065
  96. RISPERDAL [Suspect]
     Active Substance: RISPERIDONE
     Dosage: 6 MG, QD
     Route: 065
  97. RISPERDAL [Suspect]
     Active Substance: RISPERIDONE
     Dosage: 4 MG, QD
     Route: 065
  98. RISPERDAL [Suspect]
     Active Substance: RISPERIDONE
     Dosage: 6 MG, QD
     Route: 065
  99. RISPERDAL [Suspect]
     Active Substance: RISPERIDONE
     Dosage: 1 MG, QD
     Route: 065
  100. RISPERDAL [Suspect]
     Active Substance: RISPERIDONE
     Dosage: 1 G, QD
     Route: 065
  101. RISPERDAL [Suspect]
     Active Substance: RISPERIDONE
     Dosage: 4 MG, QD
     Route: 065
  102. RISPERDAL [Suspect]
     Active Substance: RISPERIDONE
     Dosage: 1 MG, QD
     Route: 065
  103. RISPERDAL [Suspect]
     Active Substance: RISPERIDONE
     Dosage: 4 MG, QD
     Route: 065
  104. RISPERDAL [Suspect]
     Active Substance: RISPERIDONE
     Dosage: 4 MG, QD
     Route: 065
  105. RISPERDAL [Suspect]
     Active Substance: RISPERIDONE
     Dosage: 1 MG, QD
     Route: 065
  106. RISPERDAL [Suspect]
     Active Substance: RISPERIDONE
     Dosage: 1 G, QD
     Route: 065
  107. RISPERDAL [Suspect]
     Active Substance: RISPERIDONE
     Dosage: 4 MG, QD
     Route: 065
  108. RISPERDAL [Suspect]
     Active Substance: RISPERIDONE
     Dosage: 1 G, QD
     Route: 065
  109. RISPERDAL [Suspect]
     Active Substance: RISPERIDONE
     Dosage: 6 MG, QD
     Route: 048
  110. RISPERDAL [Suspect]
     Active Substance: RISPERIDONE
     Dosage: 1 G, QD
     Route: 065
  111. RISPERDAL [Suspect]
     Active Substance: RISPERIDONE
     Dosage: 6 MG, QD
     Route: 048
  112. RISPERDAL [Suspect]
     Active Substance: RISPERIDONE
     Dosage: 4 MG, QD
     Route: 065
  113. RISPERDAL [Suspect]
     Active Substance: RISPERIDONE
     Dosage: 1 G, QD
     Route: 065
  114. RISPERDAL [Suspect]
     Active Substance: RISPERIDONE
     Dosage: 1 G, QD
     Route: 065
  115. RISPERDAL [Suspect]
     Active Substance: RISPERIDONE
     Dosage: 1 MG, QD
     Route: 065
  116. RISPERDAL [Suspect]
     Active Substance: RISPERIDONE
     Dosage: 3 MG, BID
     Route: 048
  117. RISPERDAL [Suspect]
     Active Substance: RISPERIDONE
     Dosage: 1 MG, QD
     Route: 065
  118. RISPERDAL [Suspect]
     Active Substance: RISPERIDONE
     Dosage: 4 MG, QD
     Route: 065
  119. RISPERDAL [Suspect]
     Active Substance: RISPERIDONE
     Dosage: 4 MG, QD
     Route: 065
  120. RISPERDAL [Suspect]
     Active Substance: RISPERIDONE
     Dosage: 1 MG, QD
     Route: 065
  121. RISPERDAL [Suspect]
     Active Substance: RISPERIDONE
     Dosage: 6 MG, QD
     Route: 065
  122. RISPERDAL [Suspect]
     Active Substance: RISPERIDONE
     Dosage: 6 MG, QD
     Route: 065
  123. CHLORPROMAZINE [Suspect]
     Active Substance: CHLORPROMAZINE
     Indication: Schizophrenia
     Dosage: 75 MG
     Route: 065
  124. CHLORPROMAZINE [Suspect]
     Active Substance: CHLORPROMAZINE
     Dosage: 75 MG
     Route: 065
  125. CHLORPROMAZINE [Suspect]
     Active Substance: CHLORPROMAZINE
     Dosage: 75 MG
     Route: 065
  126. CHLORPROMAZINE [Suspect]
     Active Substance: CHLORPROMAZINE
     Dosage: 75 MG
     Route: 065
  127. CHLORPROMAZINE [Suspect]
     Active Substance: CHLORPROMAZINE
     Dosage: 75 MG
     Route: 065
  128. CHLORPROMAZINE [Suspect]
     Active Substance: CHLORPROMAZINE
     Dosage: 75 MG
     Route: 065
  129. CLOZARIL [Suspect]
     Active Substance: CLOZAPINE
     Indication: Schizophrenia
     Dosage: 100 MG, QD (EACH MORNING)
     Route: 048
  130. CLOZARIL [Suspect]
     Active Substance: CLOZAPINE
     Dosage: 1 DF, QD (1 DOSAGE FORM, EACH MORNING)
     Route: 048
     Dates: start: 2011
  131. CLOZARIL [Suspect]
     Active Substance: CLOZAPINE
     Dosage: 100 MG, QD
     Route: 065
  132. CLOZARIL [Suspect]
     Active Substance: CLOZAPINE
     Dosage: 300 MG, QD
     Route: 065
  133. CLOZARIL [Suspect]
     Active Substance: CLOZAPINE
     Dosage: 100 MG, QD
     Route: 065
  134. CLOZARIL [Suspect]
     Active Substance: CLOZAPINE
     Dosage: 400 MG, QD
     Route: 065
  135. CLOZARIL [Suspect]
     Active Substance: CLOZAPINE
     Dosage: 800 MG, QD
     Route: 048
  136. CLOZARIL [Suspect]
     Active Substance: CLOZAPINE
     Dosage: 50 MG, QD
     Route: 065
  137. CLOZARIL [Suspect]
     Active Substance: CLOZAPINE
     Dosage: 275 MG, QD
     Route: 065
  138. CLOZARIL [Suspect]
     Active Substance: CLOZAPINE
     Dosage: 400 MG, QD
     Route: 048
     Dates: start: 20191209, end: 20191223
  139. CLOZARIL [Suspect]
     Active Substance: CLOZAPINE
     Dosage: 300 MG, QD
     Route: 065
  140. CLOZARIL [Suspect]
     Active Substance: CLOZAPINE
     Dosage: 800 MG, QD
     Route: 065
  141. CLOZARIL [Suspect]
     Active Substance: CLOZAPINE
     Dosage: 275 MG, QD
     Route: 065
  142. CLOZARIL [Suspect]
     Active Substance: CLOZAPINE
     Dosage: 300 MG, QD
     Route: 048
  143. CLOZARIL [Suspect]
     Active Substance: CLOZAPINE
     Dosage: 300 MG, QD
     Route: 065
  144. CLOZARIL [Suspect]
     Active Substance: CLOZAPINE
     Dosage: 400 MG, QD
     Route: 048
  145. CLOZARIL [Suspect]
     Active Substance: CLOZAPINE
     Dosage: UNK
     Route: 048
     Dates: start: 20191223, end: 20191223
  146. CLOZARIL [Suspect]
     Active Substance: CLOZAPINE
     Dosage: 400 MG, QD
     Route: 048
  147. CLOZARIL [Suspect]
     Active Substance: CLOZAPINE
     Dosage: 275 MG, QD
     Route: 065
  148. CLOZARIL [Suspect]
     Active Substance: CLOZAPINE
     Dosage: 50 MG, QD
     Route: 065
  149. CLOZARIL [Suspect]
     Active Substance: CLOZAPINE
     Dosage: 400 MG, QD
     Route: 065
  150. CLOZARIL [Suspect]
     Active Substance: CLOZAPINE
     Dosage: 400 MG, QD
     Route: 048
  151. CLOZARIL [Suspect]
     Active Substance: CLOZAPINE
     Dosage: 50 MG, QD
     Route: 065
  152. CLOZARIL [Suspect]
     Active Substance: CLOZAPINE
     Dosage: 275 MG, QD
     Route: 065
  153. CLOZARIL [Suspect]
     Active Substance: CLOZAPINE
     Dosage: 100 MG, QD
     Route: 065
  154. CLOZARIL [Suspect]
     Active Substance: CLOZAPINE
     Dosage: 50 MG, QD
     Route: 065
  155. CLOZARIL [Suspect]
     Active Substance: CLOZAPINE
     Dosage: 275 MG, QD
     Route: 065
  156. CLOZARIL [Suspect]
     Active Substance: CLOZAPINE
     Dosage: 400 MG, QD ( OFF LABEL USE)
     Route: 065
  157. CLOZARIL [Suspect]
     Active Substance: CLOZAPINE
     Dosage: UNK
     Route: 048
     Dates: start: 20100823
  158. CLOZARIL [Suspect]
     Active Substance: CLOZAPINE
     Dosage: UNK
     Route: 048
     Dates: start: 2011
  159. CLOZARIL [Suspect]
     Active Substance: CLOZAPINE
     Dosage: 245 MG
     Route: 048
     Dates: start: 20191209, end: 20191223
  160. CLOZARIL [Suspect]
     Active Substance: CLOZAPINE
     Dosage: UNK
     Route: 048
     Dates: start: 20191223, end: 20191223
  161. CLOZARIL [Suspect]
     Active Substance: CLOZAPINE
     Dosage: 400 MG, QD
     Route: 048
     Dates: start: 20191209, end: 20191223
  162. CLOZARIL [Suspect]
     Active Substance: CLOZAPINE
     Dosage: 100 MG, QD
     Route: 065
  163. CLOZARIL [Suspect]
     Active Substance: CLOZAPINE
     Dosage: UNK
     Route: 048
     Dates: start: 20201207
  164. CLOZARIL [Suspect]
     Active Substance: CLOZAPINE
     Dosage: UNK
     Route: 048
     Dates: start: 20200521, end: 2021
  165. CLOZARIL [Suspect]
     Active Substance: CLOZAPINE
     Dosage: 400 MG, QD
     Route: 048
  166. CLOZARIL [Suspect]
     Active Substance: CLOZAPINE
     Dosage: 50 MG, QD
     Route: 065
  167. CLOZARIL [Suspect]
     Active Substance: CLOZAPINE
     Dosage: 245 MG, QD
     Route: 065
     Dates: start: 2011
  168. CLOZARIL [Suspect]
     Active Substance: CLOZAPINE
     Dosage: 400 MG, QD
     Route: 065
  169. CLOZARIL [Suspect]
     Active Substance: CLOZAPINE
     Dosage: 300 MG, QD
     Route: 065
  170. CLOZARIL [Suspect]
     Active Substance: CLOZAPINE
     Dosage: UNK
     Route: 048
     Dates: start: 20200521, end: 2020
  171. CLOZARIL [Suspect]
     Active Substance: CLOZAPINE
     Dosage: UNK
     Route: 048
     Dates: start: 20191209, end: 20191223
  172. CLOZARIL [Suspect]
     Active Substance: CLOZAPINE
     Dosage: UNK
     Route: 048
     Dates: start: 20201207
  173. CLOZARIL [Suspect]
     Active Substance: CLOZAPINE
     Dosage: 275 MG, QD
     Route: 065
  174. CLOZARIL [Suspect]
     Active Substance: CLOZAPINE
     Dosage: 245 MG, QD
     Route: 065
     Dates: start: 2011
  175. CLOZARIL [Suspect]
     Active Substance: CLOZAPINE
     Dosage: 300 MG, QD
     Route: 065
  176. CLOZARIL [Suspect]
     Active Substance: CLOZAPINE
     Dosage: 50 MG, DAILY
     Route: 048
  177. CLOZARIL [Suspect]
     Active Substance: CLOZAPINE
     Dosage: 275 MG, QD
     Route: 048
     Dates: start: 20200521, end: 2020
  178. CLOZARIL [Suspect]
     Active Substance: CLOZAPINE
     Dosage: 100 MG, QD
     Route: 065
  179. CLOZARIL [Suspect]
     Active Substance: CLOZAPINE
     Dosage: 400 MILLIGRAM, QD (200 MILLIGRAM, BID)
     Route: 048
  180. CLOZARIL [Suspect]
     Active Substance: CLOZAPINE
     Dosage: 200 MILLIGRAM, BID
     Route: 065
  181. CLOZARIL [Suspect]
     Active Substance: CLOZAPINE
     Dosage: 275 MILLIGRAM, PM
     Route: 065
  182. CLOZARIL [Suspect]
     Active Substance: CLOZAPINE
     Dosage: 400 MG, QD
     Route: 048
     Dates: start: 20201207
  183. LORAZEPAM [Suspect]
     Active Substance: LORAZEPAM
     Indication: Schizophrenia
     Dosage: 1 MG
     Route: 048
  184. LORAZEPAM [Suspect]
     Active Substance: LORAZEPAM
     Dosage: 1 MG
     Route: 048
  185. LORAZEPAM [Suspect]
     Active Substance: LORAZEPAM
     Dosage: 1 MG
     Route: 048
  186. LORAZEPAM [Suspect]
     Active Substance: LORAZEPAM
     Dosage: 1 MG
     Route: 048
  187. LORAZEPAM [Suspect]
     Active Substance: LORAZEPAM
     Dosage: 1 MG
     Route: 048
  188. LORAZEPAM [Suspect]
     Active Substance: LORAZEPAM
     Dosage: 1 MG
     Route: 048
  189. LORAZEPAM [Suspect]
     Active Substance: LORAZEPAM
     Dosage: 15 UNK
     Route: 065
     Dates: start: 20060704
  190. ZUCLOPENTHIXOL [Suspect]
     Active Substance: ZUCLOPENTHIXOL
     Indication: Product used for unknown indication
     Dosage: 400 MG, WEEKLY (1/W)
     Route: 065
     Dates: start: 20040217, end: 20040601
  191. ZUCLOPENTHIXOL [Suspect]
     Active Substance: ZUCLOPENTHIXOL
     Dosage: 300 MG, WEEKLY (1/W)
     Route: 030
     Dates: start: 20091018
  192. ZUCLOPENTHIXOL [Suspect]
     Active Substance: ZUCLOPENTHIXOL
     Dosage: 400 MG, BIW
     Route: 065
     Dates: start: 20030204, end: 20040217
  193. ZUCLOPENTHIXOL [Suspect]
     Active Substance: ZUCLOPENTHIXOL
     Dosage: 400 MG, BIW
     Route: 065
     Dates: start: 20040601, end: 20041018
  194. ZUCLOPENTHIXOL [Suspect]
     Active Substance: ZUCLOPENTHIXOL
     Dosage: 300 MG, QW
     Route: 030
     Dates: start: 20091009
  195. ZUCLOPENTHIXOL [Suspect]
     Active Substance: ZUCLOPENTHIXOL
     Dosage: UNK
     Route: 065
  196. ZUCLOPENTHIXOL [Suspect]
     Active Substance: ZUCLOPENTHIXOL
     Dosage: UNK
     Route: 065
  197. ZUCLOPENTHIXOL [Suspect]
     Active Substance: ZUCLOPENTHIXOL
     Dosage: 400 MG, BIW
     Route: 065
     Dates: start: 20041018, end: 20041018
  198. ZUCLOPENTHIXOL [Suspect]
     Active Substance: ZUCLOPENTHIXOL
     Dosage: 300 MG, QD
     Route: 030
     Dates: start: 20091009

REACTIONS (14)
  - Affective disorder [Recovered/Resolved]
  - Schizophrenia [Not Recovered/Not Resolved]
  - Neutropenia [Recovered/Resolved]
  - Neutrophil count increased [Unknown]
  - Fatigue [Unknown]
  - Delusion of grandeur [Unknown]
  - Lymphocyte count decreased [Unknown]
  - Platelet count decreased [Recovered/Resolved]
  - Leukopenia [Recovered/Resolved with Sequelae]
  - Extrapyramidal disorder [Unknown]
  - Psychotic disorder [Recovered/Resolved]
  - Hallucination, auditory [Unknown]
  - Off label use [Unknown]
  - Overdose [Unknown]

NARRATIVE: CASE EVENT DATE: 20190101
